FAERS Safety Report 6801866-8 (Version None)
Quarter: 2010Q2

REPORT INFORMATION
  Report Type: 
  Country: None (occurrence: None)
  Receive Date: 20100629
  Receipt Date: 20100617
  Transmission Date: 20101027
  Serious: Yes (Life-Threatening, Hospitalization)
  Sender: FDA-Public Use
  Company Number: IL-PFIZER INC-2009258410

PATIENT
  Age: 73 Year
  Sex: Male
  Weight: 64 kg

DRUGS (13)
  1. BLINDED *NO SUBJECT DRUG [Suspect]
     Indication: PROSTATE CANCER
     Dosage: 37.5 MG, 1X/DAY
     Route: 048
     Dates: start: 20090805, end: 20090813
  2. BLINDED *PLACEBO [Suspect]
     Indication: PROSTATE CANCER
     Dosage: 37.5 MG, 1X/DAY
     Route: 048
     Dates: start: 20090805, end: 20090813
  3. SUNITINIB MALATE [Suspect]
     Indication: PROSTATE CANCER
     Dosage: 37.5 MG, 1X/DAY
     Route: 048
     Dates: start: 20090805, end: 20090813
  4. PREDNISONE [Suspect]
     Indication: PROSTATE CANCER
     Dosage: 5 MG, 2X/DAY
     Route: 048
     Dates: start: 20090805, end: 20090813
  5. LANTUS [Concomitant]
     Indication: DIABETES MELLITUS
     Dosage: 16 UNK, 1X/DAY
     Route: 058
     Dates: start: 20080101
  6. ATACAND [Concomitant]
     Indication: HYPERTENSION
     Dosage: 16 MG, 2X/DAY
     Route: 048
     Dates: start: 20070101
  7. RAMIPRIL [Concomitant]
     Indication: HYPERTENSION
     Dosage: 5 MG, 1X/DAY
     Route: 048
     Dates: start: 20070101
  8. SIMOVIL [Concomitant]
     Indication: HYPERCHOLESTEROLAEMIA
     Dosage: 20 MG, 1X/DAY
     Route: 048
     Dates: start: 20070101
  9. LORIVAN [Concomitant]
     Indication: INSOMNIA
     Dosage: UNK MG, 1X/DAY
     Route: 048
     Dates: start: 20070801
  10. VABEN [Concomitant]
     Indication: DEPRESSION
     Dosage: UNK MG, 1X/DAY
     Route: 048
     Dates: start: 20090801
  11. NALOXONE/OXYCODONE [Concomitant]
     Indication: PAIN
     Dosage: 10 MG, 1X/DAY
     Route: 048
     Dates: start: 20090729
  12. GASTRO [Concomitant]
     Indication: DYSPEPSIA
     Dosage: 40 MG, 1X/DAY
     Route: 048
     Dates: start: 20090802
  13. CIPRALEX [Concomitant]
     Indication: DEPRESSION
     Dosage: 10 MG, 1X/DAY
     Route: 048
     Dates: start: 20090816

REACTIONS (1)
  - ACUTE MYOCARDIAL INFARCTION [None]
